FAERS Safety Report 8558624-6 (Version None)
Quarter: 2012Q3

REPORT INFORMATION
  Report Type: 
  Country: None (occurrence: None)
  Receive Date: 20120801
  Receipt Date: 20120720
  Transmission Date: 20120928
  Serious: No
  Sender: FDA-Public Use
  Company Number: US-ASTRAZENECA-2012SE51806

PATIENT
  Age: 63 Year
  Sex: Male

DRUGS (1)
  1. ZOMIG [Suspect]
     Route: 065

REACTIONS (3)
  - TOOTHACHE [None]
  - CLUSTER HEADACHE [None]
  - DRUG DOSE OMISSION [None]
